FAERS Safety Report 17718857 (Version 1)
Quarter: 2020Q2

REPORT INFORMATION
  Report Type: Spontaneous
  Country: DE (occurrence: DE)
  Receive Date: 20200428
  Receipt Date: 20200428
  Transmission Date: 20200714
  Serious: Yes (Other)
  Sender: FDA-Public Use
  Company Number: DE-SAMSUNG BIOEPIS-SB-2020-14281

PATIENT
  Sex: Female

DRUGS (1)
  1. BENEPALI [Suspect]
     Active Substance: ETANERCEPT
     Indication: PSORIASIS
     Route: 058
     Dates: start: 201905

REACTIONS (2)
  - Renal function test abnormal [Not Recovered/Not Resolved]
  - Product substitution [Not Recovered/Not Resolved]
